FAERS Safety Report 7056943-6 (Version None)
Quarter: 2010Q4

REPORT INFORMATION
  Report Type: 
  Country: None (occurrence: None)
  Receive Date: 20101021
  Receipt Date: 20101021
  Transmission Date: 20110411
  Serious: Yes (Hospitalization)
  Sender: FDA-Public Use
  Company Number: None

PATIENT
  Age: 56 Year
  Sex: Female
  Weight: 89.4 kg

DRUGS (19)
  1. GI COCKTAIL (HYOSCYAMINE 0.0125 MG/ML INSTITUTION'S RECIPE [Suspect]
     Indication: DYSPEPSIA
     Dosage: 10-15 ML ONCE ORAL
     Route: 048
     Dates: start: 20100701
  2. MAALOX 24 MG/ML INSTITUTION'S RECIPE [Suspect]
     Indication: DYSPEPSIA
     Dosage: 10-15 ML ONCE ORAL
     Route: 048
     Dates: start: 20100701
  3. LIDOCAINE [Suspect]
     Indication: DYSPEPSIA
     Dosage: 10-15 ML ONCE ORAL
     Route: 048
     Dates: start: 20100701
  4. ALBUTEROL SULFATE AUTOHALER [Concomitant]
  5. ASPIRIN [Concomitant]
  6. WELLBUTRIN [Concomitant]
  7. VITAMIN D [Concomitant]
  8. FLOVENT [Concomitant]
  9. ACETAMINOPHEN AND HYDROCODONE BITARTRATE [Concomitant]
  10. FIBROMYALGIA [Concomitant]
  11. MELOXICAM [Concomitant]
  12. METHYLPHENIDATE [Concomitant]
  13. OMEPRAZOLE [Concomitant]
  14. PREGABALIN [Concomitant]
  15. PROPRANOLOL [Concomitant]
  16. SIMVASTATIN [Concomitant]
  17. SUMATRIPTAN SUCCINATE [Concomitant]
  18. TOPIRAMATE [Concomitant]
  19. TRAMADOL HCL [Concomitant]

REACTIONS (12)
  - ARTERIOSPASM CORONARY [None]
  - DIZZINESS [None]
  - HYPERSENSITIVITY [None]
  - LIP SWELLING [None]
  - MYOCARDIAL INFARCTION [None]
  - PANIC REACTION [None]
  - PARAESTHESIA ORAL [None]
  - PHARYNGEAL OEDEMA [None]
  - SUPRAVENTRICULAR TACHYCARDIA [None]
  - SYNCOPE [None]
  - VENTRICULAR EXTRASYSTOLES [None]
  - VENTRICULAR TACHYCARDIA [None]
